FAERS Safety Report 9537122 (Version 2)
Quarter: 2013Q3

REPORT INFORMATION
  Report Type: Report from Study
  Country: CA (occurrence: CA)
  Receive Date: 20130919
  Receipt Date: 20130925
  Transmission Date: 20140515
  Serious: Yes (Death, Hospitalization, Other)
  Sender: FDA-Public Use
  Company Number: CA-JNJFOC-20130906811

PATIENT
  Age: 63 Year
  Sex: Male
  Weight: 78 kg

DRUGS (1)
  1. REMICADE [Suspect]
     Indication: COLITIS ULCERATIVE
     Route: 042
     Dates: start: 20080403, end: 20130911

REACTIONS (7)
  - Lung neoplasm malignant [Fatal]
  - Lymphoma [Not Recovered/Not Resolved]
  - Blood glucose decreased [Not Recovered/Not Resolved]
  - Blood urine present [Not Recovered/Not Resolved]
  - Confusional state [Not Recovered/Not Resolved]
  - Asthenia [Not Recovered/Not Resolved]
  - Fall [Not Recovered/Not Resolved]
